FAERS Safety Report 12756298 (Version 1)
Quarter: 2016Q3

REPORT INFORMATION
  Report Type: Report from Study
  Country: DE (occurrence: DE)
  Receive Date: 20160916
  Receipt Date: 20160916
  Transmission Date: 20161109
  Serious: Yes (Hospitalization)
  Sender: FDA-Public Use
  Company Number: DE-BIOGEN-2016BI00291188

PATIENT
  Age: 66 Year
  Sex: Female

DRUGS (11)
  1. L-THYROXIN [Concomitant]
     Active Substance: LEVOTHYROXINE SODIUM
     Indication: THYROID DISORDER
     Route: 065
     Dates: start: 2003
  2. AVONEX [Suspect]
     Active Substance: INTERFERON BETA-1A
     Indication: MULTIPLE SCLEROSIS
     Route: 030
     Dates: start: 20100101, end: 20160905
  3. ASPIRIN. [Concomitant]
     Active Substance: ASPIRIN
     Indication: BLOOD VISCOSITY INCREASED
     Route: 065
     Dates: start: 2010
  4. A.T. 10 [Concomitant]
     Active Substance: DIHYDROTACHYSTEROL
     Indication: MINERAL SUPPLEMENTATION
  5. BACLOFEN. [Concomitant]
     Active Substance: BACLOFEN
     Indication: MUSCLE SPASTICITY
     Route: 048
     Dates: start: 2010
  6. DEKRISTOL [Concomitant]
     Active Substance: CHOLECALCIFEROL
     Indication: OSTEOPENIA
     Route: 065
     Dates: start: 2005
  7. A.T. 10 [Concomitant]
     Active Substance: DIHYDROTACHYSTEROL
     Indication: THYROID DISORDER
     Route: 065
     Dates: start: 2003
  8. PANTOPRAZOL [Concomitant]
     Active Substance: PANTOPRAZOLE SODIUM
     Indication: PROPHYLAXIS
     Route: 048
     Dates: start: 2010
  9. MICTONETTEN [Concomitant]
     Indication: INCONTINENCE
     Route: 065
     Dates: start: 2010
  10. SULPIRID [Concomitant]
     Active Substance: SULPIRIDE
     Indication: PRODUCT USED FOR UNKNOWN INDICATION
     Route: 048
     Dates: start: 2010
  11. RAMIPRIL. [Concomitant]
     Active Substance: RAMIPRIL
     Indication: CARDIAC HYPERTROPHY
     Dosage: 2.5/12.5
     Route: 065
     Dates: start: 2012

REACTIONS (2)
  - Appendicitis [Recovered/Resolved with Sequelae]
  - Inflammatory marker increased [Not Recovered/Not Resolved]

NARRATIVE: CASE EVENT DATE: 20160902
